FAERS Safety Report 16850703 (Version 1)
Quarter: 2019Q3

REPORT INFORMATION
  Report Type: Spontaneous
  Country: US (occurrence: US)
  Receive Date: 20190925
  Receipt Date: 20190925
  Transmission Date: 20191005
  Serious: No
  Sender: FDA-Public Use
  Company Number: US-THERAPEUTICSMD-2019TMD02737

PATIENT
  Age: 60 Year
  Sex: Female
  Weight: 49.89 kg

DRUGS (11)
  1. VITAMIN E [Concomitant]
     Active Substance: .ALPHA.-TOCOPHEROL
  2. IMVEXXY [Suspect]
     Active Substance: ESTRADIOL
     Indication: VULVOVAGINAL DRYNESS
     Dosage: 10 ?G, 2X/WEEK
     Route: 067
     Dates: start: 201906, end: 201908
  3. LEVOTHYROXINE. [Concomitant]
     Active Substance: LEVOTHYROXINE
  4. KLONOPIN [Concomitant]
     Active Substance: CLONAZEPAM
  5. VITAMIN C [Concomitant]
     Active Substance: ASCORBIC ACID
  6. ATENOLOL. [Concomitant]
     Active Substance: ATENOLOL
  7. AMITIZA [Concomitant]
     Active Substance: LUBIPROSTONE
  8. SPIRONOLACTONE. [Concomitant]
     Active Substance: SPIRONOLACTONE
  9. BIOTIN [Concomitant]
     Active Substance: BIOTIN
  10. CRESTOR [Concomitant]
     Active Substance: ROSUVASTATIN CALCIUM
  11. MULTIVITAMIN [Concomitant]
     Active Substance: VITAMINS

REACTIONS (9)
  - Malaise [Not Recovered/Not Resolved]
  - Blood urine present [Not Recovered/Not Resolved]
  - Urethral pain [Not Recovered/Not Resolved]
  - Dysuria [Not Recovered/Not Resolved]
  - Urinary tract infection [Not Recovered/Not Resolved]
  - Urethral injury [Not Recovered/Not Resolved]
  - Nausea [Not Recovered/Not Resolved]
  - Incorrect route of product administration [Recovered/Resolved]
  - Off label use [Recovered/Resolved]

NARRATIVE: CASE EVENT DATE: 201906
